FAERS Safety Report 15136040 (Version 1)
Quarter: 2018Q3

REPORT INFORMATION
  Report Type: Spontaneous
  Country: FR (occurrence: FR)
  Receive Date: 20180712
  Receipt Date: 20180712
  Transmission Date: 20181010
  Serious: Yes (Other)
  Sender: FDA-Public Use
  Company Number: PHHY2018FR039419

PATIENT
  Age: 51 Year
  Sex: Male
  Weight: 76 kg

DRUGS (12)
  1. ASPARAGINASE [Concomitant]
     Active Substance: ASPARAGINASE
     Indication: PRODUCT USED FOR UNKNOWN INDICATION
     Dosage: UNK
     Route: 065
  2. CYTARABINE. [Suspect]
     Active Substance: CYTARABINE
     Dosage: 40 MG, CYCLIC
     Route: 037
     Dates: start: 20180326
  3. MITOXANTRONE TEVA [Suspect]
     Active Substance: MITOXANTRONE HYDROCHLORIDE
     Indication: ACUTE LYMPHOCYTIC LEUKAEMIA
     Dosage: 8 MG/M2, CYCLIC
     Route: 042
     Dates: start: 20180322
  4. MITOXANTRONE TEVA [Suspect]
     Active Substance: MITOXANTRONE HYDROCHLORIDE
     Dosage: 8 MG/M2, CYCLIC
     Route: 042
     Dates: start: 20180323
  5. DEXAMETHASONE. [Concomitant]
     Active Substance: DEXAMETHASONE
     Indication: PRODUCT USED FOR UNKNOWN INDICATION
     Dosage: UNK
     Route: 065
  6. CYTARABINE. [Suspect]
     Active Substance: CYTARABINE
     Indication: ACUTE LYMPHOCYTIC LEUKAEMIA
     Dosage: 40 MG, CYCLIC
     Route: 037
     Dates: start: 20180307
  7. CYTARABINE. [Suspect]
     Active Substance: CYTARABINE
     Dosage: 3900 MG, CYCLIC
     Route: 042
     Dates: start: 20180320, end: 20180321
  8. METHOTREXATE. [Suspect]
     Active Substance: METHOTREXATE
     Dosage: 15 MG, CYCLIC
     Route: 037
     Dates: start: 20180326
  9. METHYLPREDNISOLONE. [Concomitant]
     Active Substance: METHYLPREDNISOLONE
     Indication: PRODUCT USED FOR UNKNOWN INDICATION
     Dosage: UNK
     Route: 065
  10. METHOTREXATE. [Suspect]
     Active Substance: METHOTREXATE
     Indication: ACUTE LYMPHOCYTIC LEUKAEMIA
     Dosage: 15 MG, CYCLIC
     Route: 037
     Dates: start: 20180307
  11. ETOPOSIDE. [Suspect]
     Active Substance: ETOPOSIDE
     Indication: ACUTE LYMPHOCYTIC LEUKAEMIA
     Dosage: 293 MG, CYCLIC
     Route: 042
     Dates: start: 20180322
  12. ETOPOSIDE. [Suspect]
     Active Substance: ETOPOSIDE
     Dosage: 293 MG, CYCLIC
     Route: 042
     Dates: start: 20180324

REACTIONS (2)
  - Neuropathy peripheral [Not Recovered/Not Resolved]
  - Condition aggravated [Recovering/Resolving]

NARRATIVE: CASE EVENT DATE: 20180323
